FAERS Safety Report 14160488 (Version 4)
Quarter: 2024Q2

REPORT INFORMATION
  Report Type: Spontaneous
  Country: DE (occurrence: DE)
  Receive Date: 20171104
  Receipt Date: 20240401
  Transmission Date: 20240715
  Serious: Yes (Life-Threatening, Hospitalization, Other)
  Sender: FDA-Public Use
  Company Number: DE-AUROBINDO-AUR-APL-2017-42873

PATIENT
  Age: 66 Year
  Sex: Male
  Weight: 70 kg

DRUGS (14)
  1. LAMOTRIGINE [Interacting]
     Active Substance: LAMOTRIGINE
     Indication: Epilepsy
     Dosage: 200 MILLIGRAM, ONCE A DAY
     Route: 048
  2. LAMOTRIGINE [Interacting]
     Active Substance: LAMOTRIGINE
     Dosage: 250 MILLIGRAM, ONCE A DAY
     Route: 048
     Dates: start: 2017
  3. RISPERIDONE [Interacting]
     Active Substance: RISPERIDONE
     Indication: Personality change
     Dosage: 1 MILLIGRAM, DAILY
     Route: 048
     Dates: start: 201708, end: 2017
  4. RISPERIDONE [Interacting]
     Active Substance: RISPERIDONE
     Indication: Aggression
  5. MELPERONE [Interacting]
     Active Substance: MELPERONE
     Indication: Product used for unknown indication
     Dosage: UNK
     Route: 016
  6. MELPERONE [Interacting]
     Active Substance: MELPERONE
     Dosage: 100 MILLIGRAM
     Route: 065
  7. VALPROATE [Interacting]
     Active Substance: VALPROIC ACID
     Indication: Epilepsy
     Dosage: 500 MG, TWO TIMES A DAY
     Route: 048
     Dates: end: 2017
  8. LEVETIRACETAM [Concomitant]
     Active Substance: LEVETIRACETAM
     Indication: Epilepsy
     Dosage: 500 MG, TWO TIMES A DAY
     Route: 048
     Dates: end: 2017
  9. AZACITIDINE [Concomitant]
     Active Substance: AZACITIDINE
     Indication: Myelodysplastic syndrome
     Dosage: UNK
     Route: 042
  10. TORSEMIDE [Concomitant]
     Active Substance: TORSEMIDE
     Indication: Product used for unknown indication
     Dosage: 20 MILLIGRAM, ONCE A DAY
     Route: 065
  11. LEVOTHYROXINE SODIUM [Concomitant]
     Active Substance: LEVOTHYROXINE SODIUM
     Indication: Product used for unknown indication
     Dosage: 50 MICROGRAM, ONCE A DAY
     Route: 048
  12. PANTOPRAZOLE [Concomitant]
     Active Substance: PANTOPRAZOLE
     Indication: Epilepsy
     Dosage: 40 MILLIGRAM, ONCE A DAY
     Route: 065
  13. TAMSULOSIN [Concomitant]
     Active Substance: TAMSULOSIN
     Indication: Product used for unknown indication
     Dosage: 0.4 MILLIGRAM, ONCE A DAY
     Route: 048
  14. FILGRASTIM [Concomitant]
     Active Substance: FILGRASTIM
     Indication: Product used for unknown indication
     Dosage: UNK
     Route: 065

REACTIONS (6)
  - Epilepsy [Recovering/Resolving]
  - Coma [Recovered/Resolved]
  - Blood glucose increased [Unknown]
  - Drug interaction [Recovering/Resolving]
  - Seizure [Recovering/Resolving]
  - Endotracheal intubation [Recovering/Resolving]

NARRATIVE: CASE EVENT DATE: 20170913
